FAERS Safety Report 10492750 (Version 1)
Quarter: 2014Q4

REPORT INFORMATION
  Report Type: Spontaneous
  Country: US (occurrence: US)
  Receive Date: 20141002
  Receipt Date: 20141002
  Transmission Date: 20150528
  Serious: No
  Sender: FDA-Public Use
  Company Number: US-GLAXOSMITHKLINE-A1074954A

PATIENT
  Sex: Male

DRUGS (4)
  1. ADVAIR HFA [Suspect]
     Active Substance: FLUTICASONE PROPIONATE\SALMETEROL XINAFOATE
     Indication: FOREIGN BODY
     Dosage: 2PUFF TWICE PER DAY
     Route: 055
     Dates: start: 2006
  2. SINGULAIR [Suspect]
     Active Substance: MONTELUKAST SODIUM
     Dosage: 10MG PER DAY
  3. SPIRIVA [Suspect]
     Active Substance: TIOTROPIUM BROMIDE MONOHYDRATE
     Dosage: 1PUFF PER DAY
  4. ALBUTEROL NEBULIZER SOLUTION [Suspect]
     Active Substance: ALBUTEROL

REACTIONS (7)
  - Headache [Unknown]
  - Prescribed overdose [Unknown]
  - Dyspnoea [Unknown]
  - Drug ineffective [Unknown]
  - Malaise [Unknown]
  - Suffocation feeling [Unknown]
  - Feeling abnormal [Unknown]
